FAERS Safety Report 19730019 (Version 1)
Quarter: 2021Q3

REPORT INFORMATION
  Report Type: Spontaneous
  Country: US (occurrence: US)
  Receive Date: 20210820
  Receipt Date: 20210820
  Transmission Date: 20211014
  Serious: Yes (Other)
  Sender: FDA-Public Use
  Company Number: US-ASTRAZENECA-2021A680887

PATIENT
  Sex: Female
  Weight: 58.1 kg

DRUGS (3)
  1. VITAMINS [Concomitant]
     Active Substance: VITAMINS
  2. SYMBICORT [Suspect]
     Active Substance: BUDESONIDE\FORMOTEROL FUMARATE DIHYDRATE
     Dosage: UNKNOWN UNKNOWN
     Route: 055
     Dates: start: 2015
  3. BI?FLEX [Concomitant]

REACTIONS (4)
  - Carpal tunnel syndrome [Unknown]
  - Plantar fasciitis [Unknown]
  - Product dispensing error [Unknown]
  - Uterine cancer [Unknown]
